FAERS Safety Report 5743987-7 (Version None)
Quarter: 2008Q2

REPORT INFORMATION
  Report Type: 
  Country: None (occurrence: None)
  Receive Date: 20080520
  Receipt Date: 20080515
  Transmission Date: 20081010
  Serious: Yes (Other)
  Sender: FDA-Public Use
  Company Number: AU-AVENTIS-200814551GDDC

PATIENT
  Sex: Male

DRUGS (3)
  1. ARAVA [Suspect]
     Dosage: DOSE: UNK
  2. HEPARIN [Concomitant]
     Dosage: DOSE: UNK
  3. UNKNOWN DRUG [Concomitant]

REACTIONS (3)
  - COAGULOPATHY [None]
  - CORONARY ARTERY BYPASS [None]
  - HYPERCOAGULATION [None]
